FAERS Safety Report 10730136 (Version 1)
Quarter: 2015Q1

REPORT INFORMATION
  Report Type: Spontaneous
  Country: US (occurrence: None)
  Receive Date: 20150120
  Receipt Date: 20150120
  Transmission Date: 20150721
  Serious: Yes (Other)
  Sender: FDA-Public Use
  Company Number: None

PATIENT
  Age: 44 Year
  Sex: Female
  Weight: 65.77 kg

DRUGS (3)
  1. NUCYNTA ER [Suspect]
     Active Substance: TAPENTADOL HYDROCHLORIDE
     Indication: BACK PAIN
     Dosage: 2 PILLS A DAY, 1 EVERY 12 HRS, TAKEN BY MOUTH
     Route: 048
     Dates: start: 20141218, end: 20150111
  2. NUCYNTA ER [Suspect]
     Active Substance: TAPENTADOL HYDROCHLORIDE
     Indication: PAIN IN EXTREMITY
     Dosage: 2 PILLS A DAY, 1 EVERY 12 HRS, TAKEN BY MOUTH
     Route: 048
     Dates: start: 20141218, end: 20150111
  3. NUCYNTA ER [Suspect]
     Active Substance: TAPENTADOL HYDROCHLORIDE
     Indication: MIGRAINE
     Dosage: 2 PILLS A DAY, 1 EVERY 12 HRS, TAKEN BY MOUTH
     Route: 048
     Dates: start: 20141218, end: 20150111

REACTIONS (3)
  - Miosis [None]
  - Impaired driving ability [None]
  - Night blindness [None]

NARRATIVE: CASE EVENT DATE: 20141218
